FAERS Safety Report 4714536-7 (Version None)
Quarter: 2005Q3

REPORT INFORMATION
  Report Type: 
  Country: None (occurrence: None)
  Receive Date: 20050714
  Receipt Date: 20050310
  Transmission Date: 20060218
  Serious: Yes (Hospitalization, Other)
  Sender: FDA-Public Use
  Company Number: US-MERCK-0503USA01897

PATIENT
  Age: 52 Year
  Sex: Male
  Weight: 102 kg

DRUGS (7)
  1. VIOXX [Suspect]
     Indication: KNEE OPERATION
     Route: 048
  2. VIOXX [Suspect]
     Route: 048
     Dates: start: 19990801, end: 20030601
  3. VIOXX [Suspect]
     Route: 048
     Dates: start: 20030701
  4. GLUCOPHAGE [Concomitant]
     Indication: DIABETES MELLITUS
     Route: 065
  5. FLOVENT [Concomitant]
     Indication: ASTHMA
     Route: 065
  6. SEREVENT [Concomitant]
     Indication: ASTHMA
     Route: 065
  7. AMARYL [Concomitant]
     Indication: DIABETES MELLITUS
     Route: 065

REACTIONS (29)
  - ACUTE MYOCARDIAL INFARCTION [None]
  - ANXIETY DISORDER [None]
  - ATRIAL FIBRILLATION [None]
  - CARDIAC ARREST [None]
  - CARDIAC FAILURE CONGESTIVE [None]
  - CARDIOGENIC SHOCK [None]
  - CEREBROVASCULAR ACCIDENT [None]
  - CHEST WALL PAIN [None]
  - CHOLELITHIASIS [None]
  - CORONARY ARTERY DISEASE [None]
  - DIABETIC GASTROPARESIS [None]
  - DRESSLER'S SYNDROME [None]
  - DRUG INTOLERANCE [None]
  - GASTRITIS [None]
  - HYPERTENSION [None]
  - ILEUS PARALYTIC [None]
  - LUNG INFILTRATION [None]
  - MUSCULOSKELETAL CHEST PAIN [None]
  - MYOCARDIAL ISCHAEMIA [None]
  - NAUSEA [None]
  - POSTOPERATIVE THORACIC PROCEDURE COMPLICATION [None]
  - RENAL FAILURE ACUTE [None]
  - RENAL FAILURE CHRONIC [None]
  - RESPIRATORY FAILURE [None]
  - SEDATION [None]
  - STAPHYLOCOCCAL INFECTION [None]
  - VENTRICULAR DYSFUNCTION [None]
  - WHITE BLOOD CELL COUNT INCREASED [None]
  - WOUND INFECTION [None]
